FAERS Safety Report 23812882 (Version 2)
Quarter: 2024Q2

REPORT INFORMATION
  Report Type: Spontaneous
  Country: US (occurrence: US)
  Receive Date: 20240503
  Receipt Date: 20240618
  Transmission Date: 20240715
  Serious: No
  Sender: FDA-Public Use
  Company Number: US-862174955-ML2024-02387

PATIENT
  Age: 85 Year
  Sex: Female

DRUGS (1)
  1. DORZOLAMIDE HYDROCHLORIDE OPHTHALMIC SOLUTION [Suspect]
     Active Substance: DORZOLAMIDE HYDROCHLORIDE
     Indication: Product used for unknown indication
     Dosage: DOSE: ONE DROP IN EACH EYE TWICE A DAY
     Route: 047
     Dates: start: 20240326

REACTIONS (3)
  - Eye irritation [Not Recovered/Not Resolved]
  - Eye pruritus [Unknown]
  - Liquid product physical issue [Unknown]

NARRATIVE: CASE EVENT DATE: 20240326
